FAERS Safety Report 12846607 (Version 1)
Quarter: 2016Q4

REPORT INFORMATION
  Report Type: Spontaneous
  Country: US (occurrence: US)
  Receive Date: 20161014
  Receipt Date: 20161014
  Transmission Date: 20170207
  Serious: Yes (Other)
  Sender: FDA-Public Use
  Company Number: US-GLENMARK PHARMACEUTICALS EUROPE LIMITED-2016GMK024527

PATIENT
  Age: 77 Year
  Sex: Male

DRUGS (11)
  1. AMPHOTERICIN [Suspect]
     Active Substance: AMPHOTERICIN B
     Indication: HISTOPLASMOSIS
     Dosage: UNK (FOR A MONTH)
     Route: 061
  2. VORICONAZOLE. [Suspect]
     Active Substance: VORICONAZOLE
     Indication: HISTOPLASMOSIS
     Dosage: UNK UNK, QID
     Route: 061
  3. ITRACONAZOLE. [Suspect]
     Active Substance: ITRACONAZOLE
     Indication: SCLERITIS
  4. VORICONAZOLE. [Suspect]
     Active Substance: VORICONAZOLE
     Dosage: 5 MG, QW (6 INJECTIONS)
     Route: 065
  5. DOXYCYCLINE. [Concomitant]
     Active Substance: DOXYCYCLINE
     Indication: PRODUCT USED FOR UNKNOWN INDICATION
     Dosage: UNK
     Route: 048
  6. AMPHOTERICIN [Suspect]
     Active Substance: AMPHOTERICIN B
     Indication: SCLERITIS
     Dosage: 5 MG/KG, UNK
     Route: 042
  7. ITRACONAZOLE. [Suspect]
     Active Substance: ITRACONAZOLE
     Indication: HISTOPLASMOSIS
     Dosage: 200 MG, BID
     Route: 048
  8. VORICONAZOLE. [Suspect]
     Active Substance: VORICONAZOLE
     Indication: SCLERITIS
     Dosage: 200 MG, BID
     Route: 048
  9. AMPHOTERICIN [Suspect]
     Active Substance: AMPHOTERICIN B
     Dosage: 5 MG, QW
     Route: 065
  10. PREDNISOLONE ACETATE. [Concomitant]
     Active Substance: PREDNISOLONE ACETATE
     Indication: PRODUCT USED FOR UNKNOWN INDICATION
     Dosage: UNK, OD
     Route: 061
  11. ASPIRIN                            /00002701/ [Concomitant]
     Active Substance: ASPIRIN
     Indication: PRODUCT USED FOR UNKNOWN INDICATION
     Dosage: UNK
     Route: 065

REACTIONS (5)
  - Off label use [Unknown]
  - Diplopia [Unknown]
  - Condition aggravated [Unknown]
  - Histoplasmosis [Unknown]
  - Infective scleritis [Unknown]
